FAERS Safety Report 9097846 (Version 2)
Quarter: 2013Q1

REPORT INFORMATION
  Report Type: Spontaneous
  Country: HU (occurrence: HU)
  Receive Date: 20130212
  Receipt Date: 20130225
  Transmission Date: 20140127
  Serious: Yes (Hospitalization, Other)
  Sender: FDA-Public Use
  Company Number: HU-BRISTOL-MYERS SQUIBB COMPANY-17364217

PATIENT
  Age: 51 Year
  Sex: Male

DRUGS (14)
  1. METFORMIN HCL [Suspect]
     Indication: TYPE 2 DIABETES MELLITUS
     Dosage: ALSO TAKEN AS CONMED?27AUG09-ONG?01JUN10-ONG
     Route: 048
     Dates: start: 20090827
  2. ACENOCOUMAROL [Concomitant]
     Dates: start: 20090827
  3. FUROSEMIDE [Concomitant]
     Dates: start: 2008
  4. KALIUM [Concomitant]
     Dates: start: 2008
  5. PROPAFENONE [Concomitant]
     Route: 048
     Dates: start: 200811
  6. ATORVASTATIN [Concomitant]
     Route: 048
     Dates: start: 200904
  7. DULOXETINE HCL [Concomitant]
     Route: 048
     Dates: start: 200904
  8. PRAMIPEXOLE HCL [Concomitant]
     Route: 048
     Dates: start: 200904
  9. THIOCTIC ACID [Concomitant]
     Route: 048
     Dates: start: 200904
  10. PENTOXIFYLLINE [Concomitant]
     Route: 048
     Dates: start: 20090313
  11. ACETYLSALICYLIC ACID [Concomitant]
     Route: 048
     Dates: start: 20090313
  12. LANSOPRAZOLE [Concomitant]
     Route: 048
     Dates: start: 20090313
  13. LISINOPRIL [Concomitant]
     Route: 048
     Dates: start: 201003
  14. AMLODIPINE [Concomitant]
     Route: 048
     Dates: start: 201003

REACTIONS (1)
  - Iliac artery occlusion [Recovered/Resolved]
